FAERS Safety Report 6401848-4 (Version None)
Quarter: 2009Q4

REPORT INFORMATION
  Report Type: 
  Country: None (occurrence: None)
  Receive Date: 20091015
  Receipt Date: 20091005
  Transmission Date: 20100525
  Serious: Yes (Death, Hospitalization)
  Sender: FDA-Public Use
  Company Number: ES-ELI_LILLY_AND_COMPANY-ES200910000931

PATIENT
  Age: 24 Year
  Sex: Female

DRUGS (2)
  1. PROZAC [Suspect]
     Indication: DEPRESSION
     Route: 065
     Dates: start: 19970201
  2. CLORAZEPATE DIPOTASSIUM [Concomitant]

REACTIONS (1)
  - SEROTONIN SYNDROME [None]
